FAERS Safety Report 4296023-6 (Version None)
Quarter: 2004Q1

REPORT INFORMATION
  Report Type: 
  Country: None (occurrence: None)
  Receive Date: 20040212
  Receipt Date: 20040129
  Transmission Date: 20041129
  Serious: Yes (Hospitalization, Other)
  Sender: FDA-Public Use
  Company Number: HQWYE656929JAN04

PATIENT
  Age: 77 Year
  Sex: Female

DRUGS (7)
  1. CONCOR (BISOPROLOL, TABLET) [Suspect]
     Indication: ESSENTIAL HYPERTENSION
     Dosage: 2.5 MG 1X PER 1 DAY ORAL
     Route: 048
     Dates: start: 20010101
  2. ACTRAPHANE HM (INSULIN HUMAN INJECTION, ISOPHANE) [Suspect]
     Dosage: 42 IU 2X PER 1 DAY SC
     Route: 058
     Dates: start: 20010101, end: 20031021
  3. ACTRAPHANE HM (INSULIN HUMAN INJECTION, ISOPHANE) [Suspect]
     Dosage: 16 IU SC
     Route: 058
     Dates: start: 20031001
  4. LISINOPRIL [Suspect]
     Dosage: 5 MG 1X PER 1 DAY ORAL
     Route: 048
     Dates: start: 20000101
  5. CARBAMAZEPINE [Concomitant]
  6. DIGITOXIN INJ [Concomitant]
  7. EFEROX (LEVOTHYROXINE SODIUM) [Concomitant]

REACTIONS (4)
  - DECREASED APPETITE [None]
  - DRUG INTERACTION [None]
  - HYPERHIDROSIS [None]
  - SHOCK HYPOGLYCAEMIC [None]
